FAERS Safety Report 10168268 (Version 2)
Quarter: 2014Q2

REPORT INFORMATION
  Report Type: Spontaneous
  Country: US (occurrence: US)
  Receive Date: 20140512
  Receipt Date: 20140618
  Transmission Date: 20141212
  Serious: Yes (Other)
  Sender: FDA-Public Use
  Company Number: US-GILEAD-2014-0102122

PATIENT
  Age: 86 Year
  Sex: Female

DRUGS (9)
  1. LETAIRIS [Suspect]
     Indication: PULMONARY ARTERIAL HYPERTENSION
     Dosage: 10 MG, QD
     Route: 065
     Dates: start: 20130210, end: 20140507
  2. ADCIRCA [Suspect]
     Indication: PRODUCT USED FOR UNKNOWN INDICATION
     Dosage: 40 MG, QD
     Route: 065
     Dates: start: 20130909, end: 20140507
  3. ACTONEL [Concomitant]
  4. LIPITOR [Concomitant]
  5. COENZYME Q10 [Concomitant]
  6. CALCIUM [Concomitant]
  7. MELOXICAM [Concomitant]
  8. EXFORGE [Concomitant]
  9. HYDROCHLOROTHIAZIDE W/TRIAMTERENE [Concomitant]

REACTIONS (1)
  - Pancreatic carcinoma [Unknown]
